FAERS Safety Report 12861427 (Version 2)
Quarter: 2016Q4

REPORT INFORMATION
  Report Type: Spontaneous
  Country: GB (occurrence: GB)
  Receive Date: 20161019
  Receipt Date: 20161111
  Transmission Date: 20170207
  Serious: Yes (Death, Hospitalization, Other)
  Sender: FDA-Public Use
  Company Number: GB-ALEXION PHARMACEUTICALS INC-A201606736

PATIENT
  Age: 3 Year
  Sex: Male
  Weight: 15.5 kg

DRUGS (10)
  1. ALBUMIN [Concomitant]
     Active Substance: ALBUMIN HUMAN
     Indication: PRODUCT USED FOR UNKNOWN INDICATION
     Dosage: UNK, INFUSION
     Route: 065
  2. MEROPENEM. [Concomitant]
     Active Substance: MEROPENEM
     Indication: PRODUCT USED FOR UNKNOWN INDICATION
     Dosage: UNK
     Dates: start: 20160522, end: 20160527
  3. POTASSIUM CANRENOATE [Concomitant]
     Active Substance: CANRENOATE POTASSIUM
     Indication: PRODUCT USED FOR UNKNOWN INDICATION
     Route: 065
  4. SOLIRIS [Suspect]
     Active Substance: ECULIZUMAB
     Indication: THROMBOTIC MICROANGIOPATHY
     Dosage: 600 MG, UNK
     Route: 042
     Dates: start: 20160815
  5. SOLIRIS [Suspect]
     Active Substance: ECULIZUMAB
     Indication: OFF LABEL USE
     Dosage: 300 MG, UNK
     Route: 042
     Dates: start: 20160819
  6. IMMUNOGLOBULIN                     /00025201/ [Concomitant]
     Active Substance: HUMAN IMMUNOGLOBULIN G
     Indication: ENTEROVIRUS INFECTION
     Dosage: UNK
     Route: 042
     Dates: start: 20160523
  7. FUROSEMIDE. [Concomitant]
     Active Substance: FUROSEMIDE
     Indication: PRODUCT USED FOR UNKNOWN INDICATION
     Route: 065
  8. IMMUNOGLOBULIN                     /00025201/ [Concomitant]
     Active Substance: HUMAN IMMUNOGLOBULIN G
     Dosage: 7.5 G, UNK
     Route: 042
     Dates: start: 20160611
  9. ESOMEPRAZOLE [Concomitant]
     Active Substance: ESOMEPRAZOLE
     Indication: UPPER GASTROINTESTINAL HAEMORRHAGE
     Route: 042
  10. OXYGEN. [Concomitant]
     Active Substance: OXYGEN
     Indication: PRODUCT USED FOR UNKNOWN INDICATION
     Dosage: UNK
     Route: 055
     Dates: start: 20160716

REACTIONS (12)
  - Pericardial effusion [Unknown]
  - Infection [Unknown]
  - Off label use [Unknown]
  - Idiopathic pneumonia syndrome [Unknown]
  - Hypotension [Unknown]
  - Respiratory distress [Unknown]
  - Weaning failure [Recovered/Resolved]
  - Condition aggravated [Unknown]
  - Poor venous access [Unknown]
  - Multiple organ dysfunction syndrome [Fatal]
  - Respiratory failure [Unknown]
  - Acute kidney injury [Unknown]

NARRATIVE: CASE EVENT DATE: 20160815
